FAERS Safety Report 5383456-X (Version None)
Quarter: 2007Q3

REPORT INFORMATION
  Report Type: 
  Country: None (occurrence: None)
  Receive Date: 20070710
  Receipt Date: 20070703
  Transmission Date: 20080115
  Serious: Yes (Death)
  Sender: FDA-Public Use
  Company Number: IT-ROXANE LABORATORIES, INC-2007-IT-00248IT

PATIENT
  Age: 33 Year
  Sex: Male

DRUGS (4)
  1. PARACETAMOL [Suspect]
  2. LEVOFLOXACIN [Suspect]
  3. CLARITHROMYCIN [Suspect]
  4. FENOBARBITAL [Suspect]

REACTIONS (1)
  - TOXIC EPIDERMAL NECROLYSIS [None]
